FAERS Safety Report 8531308-6 (Version None)
Quarter: 2012Q3

REPORT INFORMATION
  Report Type: 
  Country: None (occurrence: None)
  Receive Date: 20120723
  Receipt Date: 20120718
  Transmission Date: 20120928
  Serious: Yes (Hospitalization, Other)
  Sender: FDA-Public Use
  Company Number: JP-SANOFI-AVENTIS-2012SA049819

PATIENT
  Age: 60 Year
  Sex: Female

DRUGS (11)
  1. LOSARTAN POTASSIUM [Suspect]
     Route: 065
  2. FUROSEMIDE [Suspect]
     Route: 065
  3. PIMOBENDAN [Concomitant]
  4. PERINDOPRIL ERBUMINE [Concomitant]
  5. FUROSEMIDE [Suspect]
     Route: 065
  6. SPIRONOLACTONE [Concomitant]
     Dosage: DOSE REDUCED
  7. FUROSEMIDE [Suspect]
     Route: 065
  8. FUROSEMIDE [Suspect]
     Dosage: DOSE REDUCED
     Route: 065
  9. TRICHLORMETHIAZIDE [Concomitant]
  10. BERAPROST SODIUM [Concomitant]
  11. SILDENAFIL [Concomitant]

REACTIONS (2)
  - ANURIA [None]
  - HYPONATRAEMIA [None]
